FAERS Safety Report 20770046 (Version 1)
Quarter: 2022Q2

REPORT INFORMATION
  Report Type: Spontaneous
  Country: US (occurrence: None)
  Receive Date: 20220429
  Receipt Date: 20220429
  Transmission Date: 20220720
  Serious: Yes (Other)
  Sender: FDA-Public Use
  Company Number: 2022A160630

PATIENT
  Age: 48 Year
  Sex: Male
  Weight: 108 kg

DRUGS (2)
  1. SEROQUEL [Suspect]
     Active Substance: QUETIAPINE FUMARATE
     Dosage: UNKNOWN DOSE
     Route: 048
  2. VIVITROL [Suspect]
     Active Substance: NALTREXONE
     Indication: Alcoholism
     Route: 030

REACTIONS (4)
  - Paralysis [Unknown]
  - Alcoholism [Unknown]
  - Tremor [Unknown]
  - Withdrawal syndrome [Unknown]
